FAERS Safety Report 15514876 (Version 1)
Quarter: 2018Q4

REPORT INFORMATION
  Report Type: Spontaneous
  Country: FR (occurrence: FR)
  Receive Date: 20181017
  Receipt Date: 20181017
  Transmission Date: 20190205
  Serious: Yes (Hospitalization)
  Sender: FDA-Public Use
  Company Number: FR-TEVA-2018-FR-964901

PATIENT
  Age: 55 Year
  Sex: Male
  Weight: 55 kg

DRUGS (7)
  1. FLUOROURACIL. [Suspect]
     Active Substance: FLUOROURACIL
     Indication: NASAL SINUS CANCER
     Dosage: 1380 MILLIGRAM DAILY;
     Route: 041
     Dates: start: 20180802, end: 20180806
  2. CISPLATINE [Suspect]
     Active Substance: CISPLATIN
     Indication: NASAL SINUS CANCER
     Dosage: 11 0MG
     Route: 041
     Dates: start: 20180802
  3. ORAMORPH [Concomitant]
     Active Substance: MORPHINE SULFATE
     Dosage: 60 MILLIGRAM DAILY;
     Route: 048
  4. BISOPROLOL (FUMARATE DE) [Concomitant]
     Active Substance: BISOPROLOL FUMARATE
     Dosage: 2.5 MILLIGRAM DAILY;
     Route: 048
  5. DUROGESIC [Concomitant]
     Active Substance: FENTANYL
     Dosage: 37 MCG
     Route: 062
  6. PARACETAMOL [Concomitant]
     Active Substance: ACETAMINOPHEN
     Dosage: 4 GRAM DAILY;
     Route: 048
  7. DOCETAXEL. [Suspect]
     Active Substance: DOCETAXEL
     Indication: NASAL SINUS CANCER
     Dosage: 110 MG
     Route: 041
     Dates: start: 20180802

REACTIONS (1)
  - Acute kidney injury [Recovering/Resolving]

NARRATIVE: CASE EVENT DATE: 20180813
